FAERS Safety Report 18045091 (Version 2)
Quarter: 2021Q4

REPORT INFORMATION
  Report Type: Spontaneous
  Country: CA (occurrence: CA)
  Receive Date: 20200720
  Receipt Date: 20211112
  Transmission Date: 20220303
  Serious: Yes (Hospitalization, Other)
  Sender: FDA-Public Use
  Company Number: CA-TAKEDA-2020TUS031021

PATIENT
  Age: 94 Year
  Sex: Female

DRUGS (4)
  1. PANTOPRAZOLE [Suspect]
     Active Substance: PANTOPRAZOLE
     Dosage: 40 MG
     Route: 065
     Dates: start: 202001
  2. AMOXICILLIN [Concomitant]
     Active Substance: AMOXICILLIN
     Indication: Influenza like illness
     Dosage: 500 MG, 3X/DAY
     Route: 048
     Dates: start: 20200108
  3. NORFLOXACIN [Concomitant]
     Active Substance: NORFLOXACIN
     Indication: Urinary tract infection
     Dosage: 400 MG, 2X/DAY
     Route: 048
     Dates: start: 20200114
  4. PREDNISONE [Concomitant]
     Active Substance: PREDNISONE
     Indication: Polymyalgia rheumatica
     Dosage: 1 MG, 1X/DAY
     Route: 048

REACTIONS (4)
  - Creatinine urine increased [Recovered/Resolved]
  - Eosinophils urine present [Recovered/Resolved]
  - Tubulointerstitial nephritis [Recovered/Resolved]
  - Nephritis allergic [Recovered/Resolved]

NARRATIVE: CASE EVENT DATE: 20200101
